FAERS Safety Report 4604816-8 (Version None)
Quarter: 2005Q2

REPORT INFORMATION
  Report Type: 
  Country: None (occurrence: None)
  Receive Date: 20050224
  Receipt Date: 20040607
  Transmission Date: 20051028
  Serious: No
  Sender: FDA-Public Use
  Company Number: 04P-163-0261980-00

PATIENT
  Sex: 0

DRUGS (2)
  1. MIVACRON [Suspect]
     Indication: NEUROMUSCULAR BLOCKADE
     Dosage: INTRAVENOUS
     Route: 042
     Dates: start: 20040501, end: 20040501
  2. ROCURONIUM [Concomitant]

REACTIONS (1)
  - DRUG EFFECT PROLONGED [None]
